FAERS Safety Report 12188465 (Version 1)
Quarter: 2016Q1

REPORT INFORMATION
  Report Type: Spontaneous
  Country: US (occurrence: US)
  Receive Date: 20160317
  Receipt Date: 20160317
  Transmission Date: 20160526
  Serious: No
  Sender: FDA-Public Use
  Company Number: US-ELI_LILLY_AND_COMPANY-US201603005355

PATIENT
  Sex: Male
  Weight: 82.55 kg

DRUGS (1)
  1. CYMBALTA [Suspect]
     Active Substance: DULOXETINE HYDROCHLORIDE
     Indication: POST HERPETIC NEURALGIA
     Dosage: UNK, UNKNOWN
     Route: 065

REACTIONS (2)
  - Drug ineffective [Recovered/Resolved]
  - Off label use [Unknown]
